FAERS Safety Report 5456821-X (Version None)
Quarter: 2007Q3

REPORT INFORMATION
  Report Type: 
  Country: None (occurrence: None)
  Receive Date: 20070917
  Receipt Date: 20070917
  Transmission Date: 20080115
  Serious: No
  Sender: FDA-Public Use
  Company Number: None

PATIENT
  Age: 74 Year
  Sex: Female
  Weight: 83.4619 kg

DRUGS (1)
  1. CIPROFLOXIN HCL 500MGM TARAN [Suspect]
     Indication: CYSTITIS
     Dosage: 500MGM BID PO
     Route: 048
     Dates: start: 20070808, end: 20070817

REACTIONS (2)
  - DRUG INEFFECTIVE [None]
  - THERAPEUTIC RESPONSE UNEXPECTED WITH DRUG SUBSTITUTION [None]
